FAERS Safety Report 9069096 (Version 1)
Quarter: 2013Q1

REPORT INFORMATION
  Report Type: Spontaneous
  Country: US (occurrence: US)
  Receive Date: 20130215
  Receipt Date: 20130215
  Transmission Date: 20140127
  Serious: Yes (Other)
  Sender: FDA-Public Use
  Company Number: US-BAYER-2013-019683

PATIENT
  Age: 23 Year
  Sex: Female
  Weight: 47.62 kg

DRUGS (6)
  1. GIANVI [Suspect]
  2. YAZ [Suspect]
  3. PRENATAL VITAMINS [Concomitant]
     Dosage: UNK
     Dates: start: 20120712
  4. PROZAC [Concomitant]
  5. FLUOXETINE [Concomitant]
     Dosage: UNK
     Dates: start: 20110712
  6. INTEGRA F [Concomitant]
     Dosage: UNK
     Dates: start: 20110712

REACTIONS (1)
  - Deep vein thrombosis [None]
